FAERS Safety Report 7440948-7 (Version None)
Quarter: 2011Q2

REPORT INFORMATION
  Report Type: 
  Country: None (occurrence: None)
  Receive Date: 20110427
  Receipt Date: 20110420
  Transmission Date: 20111010
  Serious: Yes (Other)
  Sender: FDA-Public Use
  Company Number: PHHY2011CH19821

PATIENT
  Age: 53 Year
  Sex: Male

DRUGS (1)
  1. VOLTAREN [Suspect]
     Indication: OSTEOARTHRITIS
     Dosage: 75 MG
     Route: 030
     Dates: start: 20110111, end: 20110111

REACTIONS (4)
  - DYSSTASIA [None]
  - PARESIS [None]
  - PERIPHERAL NERVE LESION [None]
  - INJURY [None]
